FAERS Safety Report 4686372-1 (Version None)
Quarter: 2005Q2

REPORT INFORMATION
  Report Type: 
  Country: None (occurrence: None)
  Receive Date: 20050606
  Receipt Date: 20050527
  Transmission Date: 20051028
  Serious: Yes (Hospitalization)
  Sender: FDA-Public Use
  Company Number: 2005BH000022

PATIENT
  Age: 66 Year
  Sex: Male
  Weight: 64.3 kg

DRUGS (13)
  1. EXTRANEAL [Suspect]
     Indication: RENAL FAILURE CHRONIC
     Dosage: 1500ML; EVERY DAY; IP
     Dates: start: 20040501
  2. DIANEAL [Concomitant]
  3. AMLODIPINE BESYLATE [Concomitant]
  4. VALSARTAN [Concomitant]
  5. SENNOSIDE A [Concomitant]
  6. TRIAZOLAM [Concomitant]
  7. FULSTAN [Concomitant]
  8. SELBEX [Concomitant]
  9. FERROMIA [Concomitant]
  10. ALLOPURINOL [Concomitant]
  11. FUZULEBAN [Concomitant]
  12. MEDICON [Concomitant]
  13. DEZOLAM [Concomitant]

REACTIONS (2)
  - CELLULITIS [None]
  - GINGIVAL DISORDER [None]
